FAERS Safety Report 21184873 (Version 2)
Quarter: 2022Q3

REPORT INFORMATION
  Report Type: Other
  Country: CA (occurrence: None)
  Receive Date: 20220808
  Receipt Date: 20220909
  Transmission Date: 20221027
  Serious: Yes (Other)
  Sender: FDA-Public Use
  Company Number: CA-ROCHE-3150378

PATIENT
  Age: 48 Year
  Sex: Male

DRUGS (2)
  1. OCREVUS [Suspect]
     Active Substance: OCRELIZUMAB
     Indication: Relapsing-remitting multiple sclerosis
     Dosage: 300 MG AT DAY 0 AND 14, THEN 600 MG EVERY 6 MONTH
     Route: 042
     Dates: start: 20210722
  2. OMEGA 3 [Concomitant]
     Active Substance: CAPSAICIN

REACTIONS (5)
  - COVID-19 [Recovered/Resolved]
  - Paraesthesia [Recovered/Resolved]
  - Multiple sclerosis [Not Recovered/Not Resolved]
  - Paraesthesia [Recovered/Resolved]
  - Somnolence [Not Recovered/Not Resolved]

NARRATIVE: CASE EVENT DATE: 20220707
